FAERS Safety Report 8919087 (Version 1)
Quarter: 2012Q4

REPORT INFORMATION
  Report Type: 
  Country: US (occurrence: US)
  Receive Date: 20121121
  Receipt Date: 20121121
  Transmission Date: 20130627
  Serious: No
  Sender: FDA-Public Use
  Company Number: US-ASTRAZENECA-2012SE24640

PATIENT
  Age: 69 Year
  Sex: Female
  Weight: 86.2 kg

DRUGS (7)
  1. NEXIUM [Suspect]
     Route: 048
  2. CRESTOR [Concomitant]
  3. COZAAR [Concomitant]
  4. NORVASC [Concomitant]
  5. SINGULAIR [Concomitant]
  6. ACTOSE [Concomitant]
  7. CHLOR-KON [Concomitant]

REACTIONS (3)
  - Nephritis [Unknown]
  - Renal impairment [Unknown]
  - Blood creatinine increased [Unknown]
